FAERS Safety Report 8240660 (Version 2)
Quarter: 2012Q4

REPORT INFORMATION
  Report Type: 
  Country: US (occurrence: US)
  Receive Date: 20111111
  Receipt Date: 20120914
  Transmission Date: 20130627
  Serious: Yes (Hospitalization)
  Sender: FDA-Public Use
  Company Number: US-US-EMD SERONO, INC.-7093693

PATIENT
  Age: 54 None
  Sex: Female
  Weight: 54 kg

DRUGS (8)
  1. REBIF [Suspect]
     Indication: PROGRESSIVE MULTIPLE SCLEROSIS
     Route: 058
     Dates: start: 20070627
  2. LEVAQUIN [Concomitant]
     Indication: URINARY TRACT INFECTION
  3. NEURONTIN [Concomitant]
     Indication: AFFECTIVE DISORDER
  4. CYMBALTA [Concomitant]
     Indication: AFFECTIVE DISORDER
  5. KLONOPIN [Concomitant]
     Indication: ANXIETY
  6. BACLOFEN [Concomitant]
     Indication: MUSCLE SPASTICITY
  7. OPANA [Concomitant]
     Indication: PAIN
  8. AMITRIPTYLINE [Concomitant]
     Indication: AFFECTIVE DISORDER

REACTIONS (6)
  - Urinary tract infection [Recovered/Resolved]
  - Bladder disorder [Recovering/Resolving]
  - Device leakage [Recovered/Resolved]
  - Blood glucose increased [Unknown]
  - Weight increased [Unknown]
  - Multiple sclerosis relapse [Unknown]
